FAERS Safety Report 6119385-3 (Version None)
Quarter: 2009Q1

REPORT INFORMATION
  Report Type: 
  Country: None (occurrence: None)
  Receive Date: 20090316
  Receipt Date: 20090306
  Transmission Date: 20090719
  Serious: Yes (Hospitalization)
  Sender: FDA-Public Use
  Company Number: A0714737A

PATIENT
  Age: 44 Year
  Sex: Female

DRUGS (19)
  1. AVANDIA [Suspect]
     Dosage: 4MG PER DAY
     Route: 048
     Dates: start: 20050502, end: 20070901
  2. AVANDAMET [Suspect]
     Route: 048
     Dates: start: 20040520, end: 20050301
  3. CELEBREX [Concomitant]
  4. ALPRAZOLAM [Concomitant]
  5. WELLBUTRIN [Concomitant]
  6. CYMBALTA [Concomitant]
  7. TRAZODONE HCL [Concomitant]
  8. DIOVAN [Concomitant]
  9. SINGULAIR [Concomitant]
  10. ADVAIR HFA [Concomitant]
  11. FLONASE [Concomitant]
  12. FLOMAX [Concomitant]
  13. FLOVENT [Concomitant]
  14. SKELAXIN [Concomitant]
  15. ACIPHEX [Concomitant]
  16. CYCLOBENZAPRINE [Concomitant]
  17. PROMETHAZINE [Concomitant]
  18. AMBIEN [Concomitant]
  19. LUNESTA [Concomitant]

REACTIONS (4)
  - CARDIAC FAILURE CONGESTIVE [None]
  - CARDIOMYOPATHY [None]
  - HEART INJURY [None]
  - MYOCARDIAL INFARCTION [None]
